FAERS Safety Report 23994008 (Version 3)
Quarter: 2024Q3

REPORT INFORMATION
  Report Type: Spontaneous
  Country: US (occurrence: US)
  Receive Date: 20240620
  Receipt Date: 20240822
  Transmission Date: 20241017
  Serious: Yes (Other)
  Sender: BIOGEN
  Company Number: US-BIOGEN-2024BI01269365

PATIENT
  Age: 38 Year
  Sex: Female
  Weight: 88.53 kg

DRUGS (9)
  1. TYSABRI [Suspect]
     Active Substance: NATALIZUMAB
     Indication: Relapsing multiple sclerosis
     Dosage: 49 DOSES
     Route: 050
     Dates: start: 20101105, end: 20120920
  2. TYSABRI [Suspect]
     Active Substance: NATALIZUMAB
     Route: 050
     Dates: start: 20211227, end: 20220817
  3. TYSABRI [Suspect]
     Active Substance: NATALIZUMAB
     Route: 050
     Dates: start: 20220928, end: 20240509
  4. FISH OIL [Concomitant]
     Active Substance: FISH OIL
     Indication: Product used for unknown indication
     Dosage: 900 MG-360 MG-455 MG-1000 MG
     Route: 050
  5. ZYRTEC [Concomitant]
     Active Substance: CETIRIZINE HYDROCHLORIDE
     Indication: Product used for unknown indication
     Route: 050
  6. VITAMIN D3 [Concomitant]
     Active Substance: CHOLECALCIFEROL
     Indication: Product used for unknown indication
     Dosage: 5000 UNIT TABLET; TAKE 1000 IU BY ORAL ROUTE EVERY DAY
     Route: 050
  7. ZOLOFT [Concomitant]
     Active Substance: SERTRALINE HYDROCHLORIDE
     Indication: Product used for unknown indication
     Dosage: CONCURRENTLY WITH 25 MG AND 100 MG TABLETS FOR A TOTAL OF 175 MG DAILY
     Route: 050
     Dates: start: 20230810
  8. ZOLOFT [Concomitant]
     Active Substance: SERTRALINE HYDROCHLORIDE
     Dosage: CONCURRENTLY WITH 25 MG AND 50 MG (TOTAL 175 MG/DAY)
     Route: 050
     Dates: start: 20230821
  9. ZOLOFT [Concomitant]
     Active Substance: SERTRALINE HYDROCHLORIDE
     Dosage: CONCURRENTLY WITH 50 MG AND 100 MG (TOTAL 175 MG/DAY)
     Route: 050
     Dates: start: 20230810

REACTIONS (4)
  - Progressive multifocal leukoencephalopathy [Unknown]
  - Multiple sclerosis relapse [Unknown]
  - Prescribed underdose [Recovered/Resolved]
  - Hypercoagulation [Unknown]

NARRATIVE: CASE EVENT DATE: 20211101
